FAERS Safety Report 18577144 (Version 2)
Quarter: 2020Q4

REPORT INFORMATION
  Report Type: Other
  Country: US (occurrence: US)
  Receive Date: 20201204
  Receipt Date: 20201224
  Transmission Date: 20210114
  Serious: Yes (Hospitalization, Other)
  Sender: FDA-Public Use
  Company Number: US-ROCHE-2721462

PATIENT
  Sex: Female

DRUGS (2)
  1. HYDREA [Concomitant]
     Active Substance: HYDROXYUREA
  2. PEGASYS [Suspect]
     Active Substance: PEGINTERFERON ALFA-2A
     Indication: ESSENTIAL THROMBOCYTHAEMIA
     Dosage: INJECT 90 MCG (0.5 ML) SUBCUTANEOUSLY EVERY WEEK, VIAL 180
     Route: 058

REACTIONS (8)
  - Off label use [Unknown]
  - Memory impairment [Unknown]
  - Dyspnoea [Unknown]
  - Fatigue [Unknown]
  - Intentional product use issue [Unknown]
  - Amnesia [Unknown]
  - Neuropathy peripheral [Unknown]
  - Disturbance in attention [Unknown]
